FAERS Safety Report 24768788 (Version 1)
Quarter: 2024Q4

REPORT INFORMATION
  Report Type: Spontaneous
  Country: US (occurrence: US)
  Receive Date: 20241224
  Receipt Date: 20241224
  Transmission Date: 20250115
  Serious: No
  Sender: CHIESI
  Company Number: US-CHIESI-2024CHF00329

PATIENT
  Age: 0 Year
  Sex: Female
  Weight: 0.68 kg

DRUGS (2)
  1. CUROSURF [Suspect]
     Active Substance: PORACTANT ALFA
     Indication: Neonatal respiratory distress syndrome
     Dosage: 2.5 MILLILITRE PER KILOGRAM, (1X)
     Route: 038
     Dates: start: 20240117, end: 20240117
  2. CUROSURF [Suspect]
     Active Substance: PORACTANT ALFA
     Dosage: 1.25 MILLILITRE PER KILOGRAM, (1X)
     Route: 038
     Dates: start: 20240118, end: 20240118

REACTIONS (1)
  - Expired product administered [Recovered/Resolved]

NARRATIVE: CASE EVENT DATE: 20240118
